FAERS Safety Report 4632237-0 (Version None)
Quarter: 2005Q2

REPORT INFORMATION
  Report Type: 
  Country: None (occurrence: None)
  Receive Date: 20050331
  Receipt Date: 20040526
  Transmission Date: 20051028
  Serious: Yes (Other)
  Sender: FDA-Public Use
  Company Number: 200412636BCC

PATIENT
  Age: 16 Year
  Sex: Male
  Weight: 55.7924 kg

DRUGS (3)
  1. ALEVE (CAPLET) [Suspect]
     Indication: PHARYNGOLARYNGEAL PAIN
     Dosage: 440 MG, TID, ORAL
     Route: 048
     Dates: start: 20040524, end: 20040526
  2. ALEVE (CAPLET) [Suspect]
     Indication: PYREXIA
     Dosage: 440 MG, TID, ORAL
     Route: 048
     Dates: start: 20040524, end: 20040526
  3. SINGULAIR [Concomitant]

REACTIONS (1)
  - BLOOD URINE PRESENT [None]
